FAERS Safety Report 8164133-9 (Version None)
Quarter: 2012Q1

REPORT INFORMATION
  Report Type: 
  Country: None (occurrence: None)
  Receive Date: 20120224
  Receipt Date: 20120220
  Transmission Date: 20120608
  Serious: Yes (Hospitalization, Other)
  Sender: FDA-Public Use
  Company Number: PHHO2012US001959

PATIENT
  Sex: Female
  Weight: 84.58 kg

DRUGS (11)
  1. ASPIRIN [Concomitant]
     Indication: CORONARY ARTERY DISEASE
     Dosage: 325 MG, QD
     Dates: start: 20101029
  2. FENOFIBRATE [Concomitant]
     Indication: DYSLIPIDAEMIA
     Dosage: 134 MG, QD
     Dates: start: 20101030
  3. BLINDED PLACEBO [Suspect]
     Indication: CARDIOVASCULAR EVENT PROPHYLAXIS
     Dosage: CODE NOT BROKEN
     Route: 048
     Dates: start: 20110906
  4. LISINOPRIL [Concomitant]
     Indication: CORONARY ARTERY DISEASE
     Dosage: 2.5 MG, QD
     Dates: start: 20101130
  5. PLAVIX [Concomitant]
     Indication: CORONARY ARTERY DISEASE
     Dosage: 75 MG, QD
     Dates: start: 20101029
  6. CARVEDILOL [Concomitant]
     Indication: CORONARY ARTERY DISEASE
     Dosage: 6.25 MG, BID
     Dates: start: 20101130
  7. LISINOPRIL [Concomitant]
     Indication: HYPERTENSION
  8. BLINDED NO TREATMENT RECEIVED [Suspect]
     Indication: CARDIOVASCULAR EVENT PROPHYLAXIS
     Dosage: CODE NOT BROKEN
     Route: 048
     Dates: start: 20110906
  9. SIMVASTATIN [Concomitant]
     Indication: DYSLIPIDAEMIA
     Dosage: 40 MG, QD
     Dates: start: 20101030
  10. ILARIS [Suspect]
     Indication: CARDIOVASCULAR EVENT PROPHYLAXIS
     Dosage: CODE NOT BROKEN
     Route: 048
     Dates: start: 20110906
  11. CARVEDILOL [Concomitant]
     Indication: HYPERTENSION

REACTIONS (3)
  - HAEMOPTYSIS [None]
  - PNEUMONIA [None]
  - CONCOMITANT DISEASE PROGRESSION [None]
